FAERS Safety Report 5209294-6 (Version None)
Quarter: 2007Q1

REPORT INFORMATION
  Report Type: 
  Country: None (occurrence: None)
  Receive Date: 20070116
  Receipt Date: 20070104
  Transmission Date: 20070707
  Serious: No
  Sender: FDA-Public Use
  Company Number: US-ELI_LILLY_AND_COMPANY-US200701000730

PATIENT
  Age: 46 Year
  Sex: Male

DRUGS (4)
  1. CYMBALTA [Suspect]
     Dosage: 60 MG, DAILY (1/D)
     Dates: start: 20040101
  2. TOPROL-XL [Concomitant]
  3. HYZAAR [Concomitant]
  4. VITAMIN CAP [Concomitant]

REACTIONS (1)
  - HEPATIC STEATOSIS [None]
